FAERS Safety Report 5740973-8 (Version None)
Quarter: 2008Q2

REPORT INFORMATION
  Report Type: 
  Country: None (occurrence: None)
  Receive Date: 20080516
  Receipt Date: 20080505
  Transmission Date: 20081010
  Serious: Yes (Death, Hospitalization, Other)
  Sender: FDA-Public Use
  Company Number: DE-PFIZER INC-2008034937

PATIENT
  Sex: Female
  Weight: 50 kg

DRUGS (3)
  1. LYRICA [Suspect]
     Indication: NEURALGIA
     Dosage: DAILY DOSE:150MG
     Route: 048
     Dates: start: 20080402, end: 20080414
  2. MIRTAZAPINE [Concomitant]
     Dosage: DAILY DOSE:30MG
     Route: 048
  3. CYMBALTA [Concomitant]
     Dosage: DAILY DOSE:60MG
     Route: 048

REACTIONS (4)
  - CARDIAC FAILURE [None]
  - DEATH [None]
  - OEDEMA PERIPHERAL [None]
  - URINE OUTPUT DECREASED [None]
